FAERS Safety Report 9393399 (Version 1)
Quarter: 2013Q3

REPORT INFORMATION
  Report Type: Spontaneous
  Country: US (occurrence: None)
  Receive Date: 20130709
  Receipt Date: 20130709
  Transmission Date: 20140515
  Serious: No
  Sender: FDA-Public Use
  Company Number: None

PATIENT
  Age: 73 Year
  Sex: Male
  Weight: 72.58 kg

DRUGS (10)
  1. LUPRON [Suspect]
     Indication: PROSTATE CANCER
     Dosage: A) 22.5 MG 1 SHOT 3 MONTH INJECTION?B) 30.0 MG 1 SHOT 4 MONTH
     Dates: start: 20130329
  2. PEPCID [Concomitant]
  3. LISINOPRIL [Concomitant]
  4. RAPAFLOW [Concomitant]
  5. HYDROCHLOZIDE [Concomitant]
  6. CHOLESTOFF [Concomitant]
  7. TEMERIC [Concomitant]
  8. MAGANIUM [Concomitant]
  9. B12 [Concomitant]
  10. FISH OIL [Concomitant]

REACTIONS (9)
  - Hot flush [None]
  - Hyperhidrosis [None]
  - Middle insomnia [None]
  - Nocturia [None]
  - Fatigue [None]
  - Nausea [None]
  - Vertigo positional [None]
  - Constipation [None]
  - Hypertension [None]
